FAERS Safety Report 14427956 (Version 8)
Quarter: 2018Q1

REPORT INFORMATION
  Report Type: Report from Study
  Country: None (occurrence: CA)
  Receive Date: 20180123
  Receipt Date: 20180316
  Transmission Date: 20180509
  Serious: Yes (Other)
  Sender: FDA-Public Use
  Company Number: CA-ABBVIE-18K-028-2233290-00

PATIENT
  Age: 55 Year
  Sex: Male

DRUGS (2)
  1. HUMIRA [Suspect]
     Active Substance: ADALIMUMAB
     Indication: ANKYLOSING SPONDYLITIS
     Route: 058
     Dates: start: 20090713, end: 20180108
  2. HUMIRA [Suspect]
     Active Substance: ADALIMUMAB
     Route: 058
     Dates: start: 20180212

REACTIONS (8)
  - Eye disorder [Not Recovered/Not Resolved]
  - Procedural pain [Recovering/Resolving]
  - Incision site hyperaesthesia [Recovering/Resolving]
  - Inflammatory marker increased [Recovered/Resolved]
  - Umbilical hernia [Recovering/Resolving]
  - Post procedural discharge [Recovering/Resolving]
  - Scab [Recovering/Resolving]
  - Postoperative wound complication [Recovering/Resolving]

NARRATIVE: CASE EVENT DATE: 201708
